FAERS Safety Report 7223846-3 (Version None)
Quarter: 2011Q1

REPORT INFORMATION
  Report Type: 
  Country: None (occurrence: None)
  Receive Date: 20110112
  Receipt Date: 20101229
  Transmission Date: 20110831
  Serious: No
  Sender: FDA-Public Use
  Company Number: US-ALLERGAN-1016875US

PATIENT
  Age: 64 Year
  Sex: Female

DRUGS (3)
  1. RESTASIS [Suspect]
  2. RESTASIS [Suspect]
     Indication: DRY EYE
     Dosage: 2 GTT, BID
     Route: 047
     Dates: start: 20101115
  3. SYSTANE [Concomitant]
     Indication: DRY EYE
     Dosage: USES ALL DAY LONG
     Route: 047

REACTIONS (3)
  - EYE IRRITATION [None]
  - EYE PRURITUS [None]
  - EYE DISCHARGE [None]
